FAERS Safety Report 9611106 (Version 1)
Quarter: 2013Q4

REPORT INFORMATION
  Report Type: Spontaneous
  Country: US (occurrence: US)
  Receive Date: 20131009
  Receipt Date: 20131009
  Transmission Date: 20140711
  Serious: Yes (Other)
  Sender: FDA-Public Use
  Company Number: US-RB-059221-13

PATIENT
  Age: 28 Year
  Sex: Male

DRUGS (4)
  1. SUBOXONE FILM [Suspect]
     Indication: DRUG DEPENDENCE
     Dosage: SUBOXONE FILM; UNKNOWN DOSING DETAILS
     Route: 060
     Dates: start: 2011, end: 201308
  2. SUBOXONE FILM [Suspect]
     Dosage: SUBOXONE FILM; TAKING LESS THAN PRESCRIBED
     Route: 060
     Dates: start: 201308, end: 20130928
  3. DILANTIN [Suspect]
     Indication: CONVULSION
     Route: 048
     Dates: start: 2010, end: 201308
  4. KLONOPIN [Suspect]
     Indication: CONVULSION
     Route: 048
     Dates: start: 2010, end: 201308

REACTIONS (4)
  - Convulsion [Recovered/Resolved]
  - Wrong technique in drug usage process [Recovered/Resolved]
  - Underdose [Recovered/Resolved]
  - Drug withdrawal syndrome [Not Recovered/Not Resolved]
